FAERS Safety Report 18451665 (Version 4)
Quarter: 2022Q3

REPORT INFORMATION
  Report Type: Spontaneous
  Country: JP (occurrence: JP)
  Receive Date: 20201102
  Receipt Date: 20220714
  Transmission Date: 20221027
  Serious: Yes (Hospitalization, Other)
  Sender: FDA-Public Use
  Company Number: JP-GLAXOSMITHKLINE-JP2020JPN213893

PATIENT

DRUGS (11)
  1. LAMICTAL [Suspect]
     Active Substance: LAMOTRIGINE
     Dosage: UNK
     Route: 048
     Dates: start: 202007, end: 20200809
  2. INTUNIV [Suspect]
     Active Substance: GUANFACINE HYDROCHLORIDE
     Dosage: UNK
     Dates: start: 202007, end: 20200813
  3. MAGNESIUM OXIDE [Concomitant]
     Active Substance: MAGNESIUM OXIDE
     Dosage: 660 MG, TID
  4. DIETARY SUPPLEMENT\PROBIOTICS [Concomitant]
     Active Substance: DIETARY SUPPLEMENT\PROBIOTICS
     Dosage: UNK, QD
  5. QUETIAPINE [Concomitant]
     Active Substance: QUETIAPINE
     Dosage: 600 MG, QD, BEFORE BEDTIME
  6. QUETIAPINE [Concomitant]
     Active Substance: QUETIAPINE
     Dosage: 200 MG, QD, IN THE EVENING
  7. QUETIAPINE [Concomitant]
     Active Substance: QUETIAPINE
     Dosage: 50 MG, QD, BEFORE BEDTIME
  8. LITHIUM CARBONATE [Concomitant]
     Active Substance: LITHIUM CARBONATE
     Dosage: 200 IN THE MORENING, 400 IN THE EVENING, 400 BEFORE BEDTIME
  9. LEVOMEPROMAZINE [Concomitant]
     Active Substance: LEVOMEPROMAZINE
     Dosage: 100 MG, QD, BEFORE BED TIME
  10. BELSOMRA [Concomitant]
     Active Substance: SUVOREXANT
     Dosage: 15 MG, QD, BEFORE BEDTIME
  11. VALPROATE SODIUM [Concomitant]
     Active Substance: VALPROATE SODIUM
     Dosage: 400MG IN THE MORNING, 400MG IN THE EVENING, 200MG BEFORE BEDTIME

REACTIONS (2)
  - Drug-induced liver injury [Recovering/Resolving]
  - Pyrexia [Recovering/Resolving]

NARRATIVE: CASE EVENT DATE: 20200809
